FAERS Safety Report 6517327-X (Version None)
Quarter: 2009Q4

REPORT INFORMATION
  Report Type: 
  Country: None (occurrence: None)
  Receive Date: 20091223
  Receipt Date: 20091214
  Transmission Date: 20100525
  Serious: Yes (Hospitalization, Other)
  Sender: FDA-Public Use
  Company Number: US-BAXTER-2009BH018528

PATIENT
  Age: 55 Year
  Sex: Female

DRUGS (1)
  1. DIANEAL [Suspect]
     Indication: PERITONEAL DIALYSIS
     Route: 033
     Dates: start: 20090901

REACTIONS (4)
  - KIDNEY TRANSPLANT REJECTION [None]
  - OPEN WOUND [None]
  - PERITONITIS [None]
  - TREATMENT NONCOMPLIANCE [None]
